FAERS Safety Report 11740438 (Version 2)
Quarter: 2015Q4

REPORT INFORMATION
  Report Type: Spontaneous
  Country: US (occurrence: US)
  Receive Date: 20151110
  Receipt Date: 20151120
  Transmission Date: 20160304
  Serious: No
  Sender: FDA-Public Use
  Company Number: US-ELI_LILLY_AND_COMPANY-US201205000073

PATIENT
  Sex: Female

DRUGS (9)
  1. PRISTIQ EXTENDED RELEASE [Concomitant]
     Active Substance: DESVENLAFAXINE SUCCINATE
  2. VAGIFEM [Concomitant]
     Active Substance: ESTRADIOL
  3. CALCIUM [Concomitant]
     Active Substance: CALCIUM
  4. BENZTROPINE [Concomitant]
     Active Substance: BENZTROPINE
  5. AMITIZA [Concomitant]
     Active Substance: LUBIPROSTONE
  6. VITAMIN D [Concomitant]
     Active Substance: CHOLECALCIFEROL
  7. FORTEO [Suspect]
     Active Substance: TERIPARATIDE
     Indication: OSTEOPOROSIS
     Dosage: 20 UG, QD
     Route: 065
     Dates: start: 201111
  8. FORTEO [Suspect]
     Active Substance: TERIPARATIDE
     Dosage: 20 UG, QD
     Route: 065
     Dates: start: 201111
  9. MULTIVITAMINS [Concomitant]
     Active Substance: VITAMINS

REACTIONS (6)
  - Pain in extremity [Recovered/Resolved]
  - Injection site pain [Unknown]
  - Pain [Recovered/Resolved]
  - Limb discomfort [Recovered/Resolved]
  - Arthralgia [Recovered/Resolved]
  - Bone pain [Recovering/Resolving]
